FAERS Safety Report 4511520-3 (Version None)
Quarter: 2004Q4

REPORT INFORMATION
  Report Type: 
  Country: None (occurrence: None)
  Receive Date: 20041129
  Receipt Date: 20040910
  Transmission Date: 20050328
  Serious: Yes (Other)
  Sender: FDA-Public Use
  Company Number: US-BRISTOL-MYERS SQUIBB COMPANY-12698304

PATIENT
  Age: 11 Year
  Sex: Female
  Weight: 31 kg

DRUGS (5)
  1. ABILIFY [Suspect]
     Indication: BIPOLAR DISORDER
     Route: 048
     Dates: start: 20040903, end: 20040905
  2. CONCERTA [Concomitant]
  3. LUVOX [Concomitant]
  4. DEPAKOTE [Concomitant]
  5. CLONIDINE [Concomitant]

REACTIONS (1)
  - SWOLLEN TONGUE [None]
